FAERS Safety Report 12497192 (Version 2)
Quarter: 2017Q1

REPORT INFORMATION
  Report Type: Spontaneous
  Country: DE (occurrence: DE)
  Receive Date: 20160624
  Receipt Date: 20170109
  Transmission Date: 20170428
  Serious: Yes (Other)
  Sender: FDA-Public Use
  Company Number: DE-CIPLA LTD.-2016DE08097

PATIENT

DRUGS (7)
  1. VENLAFAXINE [Suspect]
     Active Substance: VENLAFAXINE HYDROCHLORIDE
     Dosage: UNK
     Route: 048
     Dates: start: 20140430, end: 20140430
  2. ALCOHOL. [Suspect]
     Active Substance: ALCOHOL
     Dosage: UNK
     Route: 048
     Dates: start: 20140430, end: 20140430
  3. QUILONUM RETARD [Suspect]
     Active Substance: LITHIUM CARBONATE
     Dosage: 450 MG/?
     Route: 048
     Dates: start: 20140430, end: 20140430
  4. LAMOTRIGINE. [Suspect]
     Active Substance: LAMOTRIGINE
     Dosage: UNK
     Route: 048
     Dates: start: 20140430, end: 20140430
  5. QUETIAPINE. [Suspect]
     Active Substance: QUETIAPINE
     Dosage: UNK
     Route: 048
     Dates: start: 20140430, end: 20140430
  6. NORTRILEN [Suspect]
     Active Substance: NORTRIPTYLINE
     Dosage: UNK
     Route: 048
     Dates: start: 20140430, end: 20140430
  7. ABILIFY [Suspect]
     Active Substance: ARIPIPRAZOLE
     Dosage: UNK
     Route: 065
     Dates: start: 20140430, end: 20140430

REACTIONS (8)
  - Aspiration [Unknown]
  - Sopor [Unknown]
  - Blood potassium decreased [Unknown]
  - Suicide attempt [Unknown]
  - Vomiting [Recovered/Resolved]
  - Sedative therapy [Unknown]
  - Endotracheal intubation [Unknown]
  - Tachycardia [Unknown]

NARRATIVE: CASE EVENT DATE: 20140430
